FAERS Safety Report 8790037 (Version 2)
Quarter: 2013Q1

REPORT INFORMATION
  Report Type: Report from Study
  Country: JP (occurrence: JP)
  Receive Date: 20120917
  Receipt Date: 20130104
  Transmission Date: 20140127
  Serious: Yes (Other)
  Sender: FDA-Public Use
  Company Number: JP-VERTEX PHARMACEUTICAL INC.-2012-020963

PATIENT
  Age: 62 Year
  Sex: Female

DRUGS (6)
  1. VX-950 (TELAPREVIR) [Suspect]
     Indication: CHRONIC HEPATITIS C
     Dosage: 1500 MG, UNK
     Route: 048
     Dates: start: 20120306
  2. REBETOL [Suspect]
     Indication: CHRONIC HEPATITIS C
     Dosage: 400 MG, QD
     Route: 048
     Dates: start: 20120306, end: 20120328
  3. REBETOL [Suspect]
     Dosage: 200 MG, QD
     Route: 048
     Dates: start: 20120329
  4. PEGINTRON [Suspect]
     Indication: CHRONIC HEPATITIS C
     Dosage: 1.4 UNK, UNK
     Route: 058
     Dates: start: 20120306, end: 20120313
  5. PEGINTRON [Suspect]
     Dosage: 1.05 UNK, UNK
     Route: 058
     Dates: start: 20120314, end: 20120327
  6. PEGINTRON [Suspect]
     Dosage: 0.88 UNK, UNK
     Route: 058
     Dates: start: 20120328

REACTIONS (1)
  - Neutrophil count decreased [Not Recovered/Not Resolved]
